FAERS Safety Report 6984795-9 (Version None)
Quarter: 2010Q3

REPORT INFORMATION
  Report Type: 
  Country: None (occurrence: None)
  Receive Date: 20100913
  Receipt Date: 20100902
  Transmission Date: 20110219
  Serious: Yes (Other)
  Sender: FDA-Public Use
  Company Number: 2010SP002493

PATIENT
  Age: 71 Year
  Sex: Female

DRUGS (4)
  1. XOPENEX [Suspect]
     Indication: CHRONIC OBSTRUCTIVE PULMONARY DISEASE
     Dosage: PRN;INHALATION
     Route: 055
     Dates: start: 20090101
  2. SPIRIVA [Concomitant]
  3. CALCIUM CHANNEL BLOCKERS [Concomitant]
  4. PROVENTIL HFA / 00139501/ [Concomitant]

REACTIONS (3)
  - AORTIC ANEURYSM [None]
  - BREAST CANCER FEMALE [None]
  - EAR INFECTION [None]
